FAERS Safety Report 4809403-4 (Version None)
Quarter: 2005Q4

REPORT INFORMATION
  Report Type: 
  Country: None (occurrence: None)
  Receive Date: 20051021
  Receipt Date: 20051012
  Transmission Date: 20060501
  Serious: Yes (Other)
  Sender: FDA-Public Use
  Company Number: 2005142076

PATIENT
  Age: 76 Year
  Sex: Male

DRUGS (7)
  1. LIPITOR [Suspect]
     Indication: ILL-DEFINED DISORDER
  2. ZETIA [Concomitant]
  3. VIOXX [Concomitant]
  4. PLAVIX [Concomitant]
  5. LISINOPRIL [Concomitant]
  6. ACETYLSALICYLIC ACID SRT [Concomitant]
  7. DITROPAN XL [Concomitant]

REACTIONS (6)
  - CARDIAC OPERATION [None]
  - DYSGEUSIA [None]
  - INCREASED UPPER AIRWAY SECRETION [None]
  - MUSCLE SPASMS [None]
  - OESOPHAGEAL DISORDER [None]
  - SENSATION OF HEAVINESS [None]
